FAERS Safety Report 23337548 (Version 2)
Quarter: 2024Q1

REPORT INFORMATION
  Report Type: Spontaneous
  Country: US (occurrence: US)
  Receive Date: 20231226
  Receipt Date: 20240322
  Transmission Date: 20240410
  Serious: No
  Sender: FDA-Public Use
  Company Number: US-BAXTER-2023BAX038808

PATIENT

DRUGS (1)
  1. NOREPINEPHRINE BITARTRATE [Suspect]
     Active Substance: NOREPINEPHRINE BITARTRATE
     Dosage: 4 BAGS, 8 MG/250 ML, 32 MCG / ML
     Route: 065

REACTIONS (1)
  - No adverse event [Unknown]
